FAERS Safety Report 9612944 (Version 1)
Quarter: 2013Q4

REPORT INFORMATION
  Report Type: Spontaneous
  Country: US (occurrence: US)
  Receive Date: 20131010
  Receipt Date: 20131010
  Transmission Date: 20140711
  Serious: Yes (Other)
  Sender: FDA-Public Use
  Company Number: US-MYLANLABS-2013S1022180

PATIENT
  Sex: 0

DRUGS (1)
  1. REMIFENTANIL [Suspect]
     Route: 064

REACTIONS (4)
  - Foetal heart rate disorder [Recovered/Resolved]
  - Apgar score low [Recovered/Resolved]
  - Respiratory acidosis [Recovered/Resolved]
  - Foetal exposure during pregnancy [Recovered/Resolved]
